FAERS Safety Report 15508560 (Version 1)
Quarter: 2018Q4

REPORT INFORMATION
  Report Type: Spontaneous
  Country: DE (occurrence: DE)
  Receive Date: 20181016
  Receipt Date: 20181016
  Transmission Date: 20190205
  Serious: Yes (Hospitalization)
  Sender: FDA-Public Use
  Company Number: PHHY2009DE07183

PATIENT
  Age: 68 Year
  Sex: Male

DRUGS (19)
  1. NEXAVAR [Suspect]
     Active Substance: SORAFENIB
     Dosage: 400 MG, QD
     Route: 048
     Dates: start: 20080910
  2. CLOPIDOGREL [Concomitant]
     Active Substance: CLOPIDOGREL BISULFATE
     Indication: STENT PLACEMENT
     Dosage: 75 MG, QD
     Route: 048
     Dates: start: 20080301
  3. PENTALONG [Concomitant]
     Active Substance: PENTAERYTHRITOL TETRANITRATE
     Indication: CORONARY ARTERY DISEASE
     Dosage: 80 MG, TID
     Route: 048
     Dates: start: 20060601
  4. LOCHOL [Concomitant]
     Active Substance: FLUVASTATIN SODIUM
     Indication: HYPERLIPIDAEMIA
     Dosage: 80 MG, QD
     Route: 048
     Dates: start: 20080601
  5. NEXAVAR [Suspect]
     Active Substance: SORAFENIB
     Indication: METASTATIC RENAL CELL CARCINOMA
     Dosage: UNK
     Route: 048
     Dates: start: 20080603, end: 20080604
  6. ACERBON ^ICI^ [Suspect]
     Active Substance: LISINOPRIL
     Indication: HYPERTENSION
     Dosage: 30 MG, QD (20 MG MORNING,10 MG EVENING)
     Route: 048
     Dates: start: 1996, end: 20071027
  7. ALDACTONE [Concomitant]
     Active Substance: SPIRONOLACTONE
     Indication: CARDIAC FAILURE
     Dosage: 25 MG, QD
     Route: 048
     Dates: start: 20080601
  8. TOREM [Concomitant]
     Active Substance: TORSEMIDE
     Indication: CARDIAC FAILURE
     Dosage: 5 MG, QD
     Route: 048
     Dates: start: 20080601
  9. NEXAVAR [Suspect]
     Active Substance: SORAFENIB
     Dosage: 400 MG, QD
     Route: 048
     Dates: start: 20080608, end: 20080709
  10. METHIZOL [Concomitant]
     Active Substance: METHIMAZOLE
     Indication: HYPERTHYROIDISM
     Dosage: 5 MG/DAY
     Route: 048
     Dates: start: 20080201
  11. TAMSULOSIN [Suspect]
     Active Substance: TAMSULOSIN
     Indication: BENIGN PROSTATIC HYPERPLASIA
     Dosage: 0.4 MG, QD
     Route: 048
  12. AMLODIPINE [Suspect]
     Active Substance: AMLODIPINE BESYLATE
     Indication: HYPERTENSION
     Dosage: 5 MG, BID
     Route: 048
     Dates: start: 20080601
  13. BELOC ZOK [Concomitant]
     Active Substance: METOPROLOL SUCCINATE
     Indication: ARRHYTHMIA
     Dosage: 95 MG, BID
     Route: 048
     Dates: start: 20001001
  14. GLUCOBAY [Concomitant]
     Active Substance: ACARBOSE
     Indication: TYPE 2 DIABETES MELLITUS
     Dosage: 50 MG, TID
     Route: 048
     Dates: start: 1996
  15. ZOMETA [Suspect]
     Active Substance: ZOLEDRONIC ACID
     Indication: METASTASES TO BONE
     Dosage: 4 MG, EVERY 4 WEEKS
     Route: 017
     Dates: start: 20080618, end: 20080716
  16. AMARYL [Concomitant]
     Active Substance: GLIMEPIRIDE
     Indication: TYPE 2 DIABETES MELLITUS
     Dosage: 1 MG, QD
     Route: 048
     Dates: start: 20080201
  17. ASPIRIN. [Concomitant]
     Active Substance: ASPIRIN
     Indication: CORONARY ARTERY DISEASE
     Dosage: 10 MG, QD
     Route: 048
     Dates: start: 20001101
  18. DIGITOXIN [Concomitant]
     Active Substance: DIGITOXIN
     Indication: CARDIAC FAILURE
     Dosage: 0.007 MG, QD
     Route: 048
     Dates: start: 20080601
  19. NEXAVAR [Suspect]
     Active Substance: SORAFENIB
     Dosage: 600 MG, QD (200 MG MORINING, 400 MG EVENING)
     Route: 048
     Dates: start: 20080709, end: 20080809

REACTIONS (15)
  - Haemoglobin decreased [Unknown]
  - Blood sodium decreased [Unknown]
  - Platelet count increased [Unknown]
  - Mouth swelling [Recovered/Resolved]
  - Angioedema [Recovered/Resolved]
  - Mouth swelling [Recovered/Resolved]
  - Lip swelling [Recovered/Resolved]
  - Dysphagia [Recovered/Resolved]
  - Albumin urine present [Unknown]
  - Dysphagia [Unknown]
  - Swollen tongue [Recovered/Resolved]
  - C-reactive protein increased [Unknown]
  - Gamma-glutamyltransferase increased [Unknown]
  - Red blood cell sedimentation rate increased [Unknown]
  - Speech disorder [Recovered/Resolved]

NARRATIVE: CASE EVENT DATE: 20080810
